FAERS Safety Report 6379063-2 (Version None)
Quarter: 2009Q3

REPORT INFORMATION
  Report Type: 
  Country: None (occurrence: None)
  Receive Date: 20090928
  Receipt Date: 20090917
  Transmission Date: 20100115
  Serious: Yes (Death, Hospitalization)
  Sender: FDA-Public Use
  Company Number: NO-B.I. PHARMACEUTICALS,INC./RIDGEFIELD-2009-SW-00215NO

PATIENT
  Sex: Female

DRUGS (1)
  1. MELOXICAM [Suspect]
     Indication: MYALGIA
     Dates: end: 20090323

REACTIONS (4)
  - ANAEMIA [None]
  - CARDIAC ARREST [None]
  - FATIGUE [None]
  - HAEMATEMESIS [None]
